FAERS Safety Report 16014038 (Version 3)
Quarter: 2020Q1

REPORT INFORMATION
  Report Type: Spontaneous
  Country: US (occurrence: US)
  Receive Date: 20190227
  Receipt Date: 20200311
  Transmission Date: 20200409
  Serious: Yes (Other)
  Sender: FDA-Public Use
  Company Number: US-ASTRAZENECA-2019SE10456

PATIENT
  Age: 32359 Day
  Sex: Female

DRUGS (11)
  1. TRETINOIN. [Concomitant]
     Active Substance: TRETINOIN
  2. PRILOSEC [Suspect]
     Active Substance: OMEPRAZOLE MAGNESIUM
     Route: 048
     Dates: start: 1980
  3. ASPIRIN. [Concomitant]
     Active Substance: ASPIRIN
  4. PRILOSEC OTC [Suspect]
     Active Substance: OMEPRAZOLE MAGNESIUM
     Route: 048
     Dates: start: 1980
  5. DIAZEPAM. [Concomitant]
     Active Substance: DIAZEPAM
  6. ATORVASTATIN [Concomitant]
     Active Substance: ATORVASTATIN
  7. MIRTAZAPINE. [Concomitant]
     Active Substance: MIRTAZAPINE
  8. NEXIUM [Suspect]
     Active Substance: ESOMEPRAZOLE MAGNESIUM
     Route: 048
     Dates: start: 1980
  9. PREVACID [Suspect]
     Active Substance: LANSOPRAZOLE
     Route: 065
     Dates: start: 1980
  10. NEXIUM [Suspect]
     Active Substance: ESOMEPRAZOLE MAGNESIUM
     Route: 048
     Dates: start: 20161014
  11. CALCITONIN [Concomitant]
     Active Substance: CALCITONIN

REACTIONS (6)
  - Renal injury [Unknown]
  - Chronic kidney disease [Unknown]
  - Renal failure [Unknown]
  - Chronic kidney disease-mineral and bone disorder [Unknown]
  - Acute kidney injury [Unknown]
  - Rebound acid hypersecretion [Unknown]

NARRATIVE: CASE EVENT DATE: 20161014
